FAERS Safety Report 7829779-3 (Version None)
Quarter: 2011Q4

REPORT INFORMATION
  Report Type: 
  Country: None (occurrence: None)
  Receive Date: 20111021
  Receipt Date: 20111011
  Transmission Date: 20120403
  Serious: Yes (Other)
  Sender: FDA-Public Use
  Company Number: US-JNJFOC-20111007290

PATIENT
  Sex: Male
  Weight: 120.2 kg

DRUGS (5)
  1. DURAGESIC-100 [Suspect]
     Indication: PAIN
     Dosage: 100UG/HR+25UG/HR
     Route: 062
     Dates: start: 20090101, end: 20090101
  2. DURAGESIC-100 [Suspect]
     Route: 062
     Dates: start: 20090101, end: 20090101
  3. DURAGESIC-100 [Suspect]
     Route: 062
     Dates: start: 20090101, end: 20090101
  4. DURAGESIC-100 [Suspect]
     Route: 062
     Dates: start: 20090101, end: 20090101
  5. DURAGESIC-100 [Suspect]
     Route: 062
     Dates: start: 20100101

REACTIONS (4)
  - PRODUCT QUALITY ISSUE [None]
  - DRUG EFFECT INCREASED [None]
  - ARTHRITIS [None]
  - INTERVERTEBRAL DISC PROTRUSION [None]
